FAERS Safety Report 10219442 (Version 1)
Quarter: 2014Q2

REPORT INFORMATION
  Report Type: Spontaneous
  Country: US (occurrence: US)
  Receive Date: 20140605
  Receipt Date: 20140605
  Transmission Date: 20141212
  Serious: No
  Sender: FDA-Public Use
  Company Number: US-PFIZER INC-2014153477

PATIENT
  Age: 64 Year
  Sex: Female
  Weight: 43.08 kg

DRUGS (9)
  1. LYRICA [Suspect]
     Indication: NEUROPATHY PERIPHERAL
     Dosage: 75 MG, 2X/DAY
     Route: 048
     Dates: start: 20140602
  2. AMLODIPINE [Concomitant]
     Dosage: UNK
  3. VESICARE [Concomitant]
     Dosage: UNK
  4. OMEPRAZOLE [Concomitant]
     Dosage: UNK
  5. CALTRATE [Concomitant]
     Indication: MINERAL SUPPLEMENTATION
     Dosage: UNK
  6. CALTRATE [Concomitant]
     Indication: OSTEOPOROSIS
  7. VITAMIN E [Concomitant]
     Dosage: 200 MG, UNK
  8. SUDAFED [Concomitant]
     Dosage: 30 MG, UNK
  9. ADVIL [Concomitant]
     Dosage: UNK

REACTIONS (2)
  - Somnolence [Unknown]
  - Dizziness [Unknown]
